FAERS Safety Report 4299032-6 (Version None)
Quarter: 2004Q1

REPORT INFORMATION
  Report Type: 
  Country: None (occurrence: None)
  Receive Date: 20040217
  Receipt Date: 20040129
  Transmission Date: 20041129
  Serious: Yes (Hospitalization, Other)
  Sender: FDA-Public Use
  Company Number: 200310827BWH

PATIENT
  Age: 83 Year
  Sex: Male

DRUGS (9)
  1. AVOLEX (MOXIFLOXACIN HYDROCHLORIDE) [Suspect]
     Indication: BRONCHITIS
     Dosage: QD, ORAL
     Route: 048
  2. AVOLEX (MOXIFLOXACIN HYDROCHLORIDE) [Suspect]
     Indication: SINUSITIS
     Dosage: QD, ORAL
     Route: 048
  3. ALLEGRA [Concomitant]
  4. SINEMET [Concomitant]
  5. COLACE [Concomitant]
  6. ASPIRIN [Concomitant]
  7. FLOMAX [Concomitant]
  8. BIAXIN XL [Concomitant]
  9. DYNABAC [Concomitant]

REACTIONS (13)
  - AGGRESSION [None]
  - BLOOD PRESSURE SYSTOLIC DECREASED [None]
  - COMA [None]
  - DYSPHAGIA [None]
  - FEELING ABNORMAL [None]
  - HALLUCINATION [None]
  - MASTICATION DISORDER [None]
  - PARKINSON'S DISEASE [None]
  - PSYCHOTIC DISORDER [None]
  - PULMONARY OEDEMA [None]
  - RHINITIS [None]
  - RHONCHI [None]
  - SPEECH DISORDER [None]
